FAERS Safety Report 6423109-X (Version None)
Quarter: 2009Q4

REPORT INFORMATION
  Report Type: 
  Country: None (occurrence: None)
  Receive Date: 20091102
  Receipt Date: 20091020
  Transmission Date: 20100525
  Serious: Yes (Other)
  Sender: FDA-Public Use
  Company Number: GB-ELI_LILLY_AND_COMPANY-GB200907000326

PATIENT
  Sex: Female
  Weight: 49 kg

DRUGS (3)
  1. STRATTERA [Suspect]
     Indication: ATTENTION DEFICIT/HYPERACTIVITY DISORDER
     Dosage: UNK, UNKNOWN
     Route: 048
  2. STRATTERA [Interacting]
     Dosage: 18 MG, UNKNOWN
     Route: 048
     Dates: start: 20090113, end: 20090114
  3. RISPERIDONE [Interacting]
     Dosage: UNK LOW DOSE
     Route: 048

REACTIONS (5)
  - ATAXIA [None]
  - DRUG INEFFECTIVE [None]
  - DRUG INTERACTION [None]
  - SPEECH DISORDER [None]
  - SYNCOPE [None]
